FAERS Safety Report 6088105-3 (Version None)
Quarter: 2009Q1

REPORT INFORMATION
  Report Type: 
  Country: None (occurrence: None)
  Receive Date: 20090220
  Receipt Date: 20090205
  Transmission Date: 20090719
  Serious: Yes (Death)
  Sender: FDA-Public Use
  Company Number: AE2009-024

PATIENT
  Age: 79 Year
  Sex: Male

DRUGS (1)
  1. FAZACLO ODT [Suspect]
     Dosage: 625 MG DAILY PO
     Route: 048
     Dates: start: 20081119, end: 20081229

REACTIONS (1)
  - DEATH [None]
